FAERS Safety Report 18765813 (Version 1)
Quarter: 2021Q1

REPORT INFORMATION
  Report Type: Spontaneous
  Country: US (occurrence: US)
  Receive Date: 20210120
  Receipt Date: 20210120
  Transmission Date: 20210419
  Serious: Yes (Other)
  Sender: FDA-Public Use
  Company Number: US-BIOMARINAP-US-2021-134506

PATIENT
  Sex: Male
  Weight: 76.6 kg

DRUGS (2)
  1. PALYNZIQ [Suspect]
     Active Substance: PEGVALIASE-PQPZ
     Indication: PHENYLKETONURIA
     Dosage: 10 MILLIGRAM, QD
     Route: 058
  2. KUVAN [Suspect]
     Active Substance: SAPROPTERIN DIHYDROCHLORIDE
     Indication: PHENYLKETONURIA
     Dosage: 1600 MILLIGRAM, QD
     Route: 048

REACTIONS (5)
  - Headache [Not Recovered/Not Resolved]
  - Concussion [Not Recovered/Not Resolved]
  - Photophobia [Not Recovered/Not Resolved]
  - Contusion [Unknown]
  - Road traffic accident [Unknown]

NARRATIVE: CASE EVENT DATE: 202012
